FAERS Safety Report 9506980 (Version 1)
Quarter: 2013Q3

REPORT INFORMATION
  Report Type: Spontaneous
  Country: CN (occurrence: CN)
  Receive Date: 20130909
  Receipt Date: 20130909
  Transmission Date: 20140515
  Serious: Yes (Other)
  Sender: FDA-Public Use
  Company Number: CN-ROCHE-1271202

PATIENT
  Sex: Female
  Weight: 50 kg

DRUGS (3)
  1. CAPECITABINE [Suspect]
     Indication: GASTRIC CANCER
     Dosage: 3 TABLETS, DAY 1-14
     Route: 048
     Dates: start: 20120726, end: 20120726
  2. TAXOL [Suspect]
     Indication: GASTRIC CANCER
     Dosage: DAY 1
     Route: 042
     Dates: start: 20120726, end: 20120726
  3. OXALIPLATIN [Suspect]
     Indication: GASTRIC CANCER
     Dosage: DAY 1
     Route: 042
     Dates: start: 20120726, end: 20120726

REACTIONS (1)
  - Proteinuria [Recovering/Resolving]
